FAERS Safety Report 5740335-3 (Version None)
Quarter: 2008Q2

REPORT INFORMATION
  Report Type: 
  Country: None (occurrence: None)
  Receive Date: 20080513
  Receipt Date: 20080502
  Transmission Date: 20081010
  Serious: Yes (Hospitalization)
  Sender: FDA-Public Use
  Company Number: 2008SP008328

PATIENT
  Sex: Female
  Weight: 49 kg

DRUGS (2)
  1. PEGINTERON (PEGINTERFERON ALFA-2B) (PEGINTERFERON ALFA-2B) [Suspect]
     Indication: MALIGNANT MELANOMA STAGE IV
     Dosage: 3 MCG/KG;QW;SC
     Route: 058
     Dates: start: 20080414, end: 20080421
  2. SORAFENIB (SORAFENIB) [Suspect]
     Indication: MALIGNANT MELANOMA STAGE IV
     Dosage: 800 MG; PO
     Route: 048
     Dates: start: 20080414, end: 20080420

REACTIONS (12)
  - ALANINE AMINOTRANSFERASE INCREASED [None]
  - ASPARTATE AMINOTRANSFERASE INCREASED [None]
  - BLOOD ALBUMIN DECREASED [None]
  - BLOOD CALCIUM DECREASED [None]
  - BLOOD SODIUM DECREASED [None]
  - C-REACTIVE PROTEIN INCREASED [None]
  - EOSINOPHIL COUNT DECREASED [None]
  - GENERAL PHYSICAL HEALTH DETERIORATION [None]
  - LABORATORY TEST ABNORMAL [None]
  - LYMPHOCYTE COUNT DECREASED [None]
  - MEAN CELL VOLUME ABNORMAL [None]
  - PROTEIN TOTAL DECREASED [None]
